FAERS Safety Report 7450581-9 (Version None)
Quarter: 2011Q2

REPORT INFORMATION
  Report Type: 
  Country: None (occurrence: None)
  Receive Date: 20110502
  Receipt Date: 20110419
  Transmission Date: 20111010
  Serious: Yes (Other)
  Sender: FDA-Public Use
  Company Number: US-ELI_LILLY_AND_COMPANY-US201010000083

PATIENT
  Sex: Female

DRUGS (4)
  1. FORTEO [Suspect]
  2. EVISTA [Suspect]
     Indication: OSTEOPOROSIS
     Dosage: 60 MG, DAILY (1/D)
  3. FORTEO [Suspect]
     Indication: OSTEOPOROSIS
     Dosage: 20 UG, DAILY (1/D)
     Dates: start: 20101207
  4. INSULIN [Concomitant]
     Indication: DIABETES MELLITUS

REACTIONS (11)
  - VISUAL ACUITY REDUCED [None]
  - ARTHRITIS [None]
  - TINNITUS [None]
  - CORNEAL TRANSPLANT [None]
  - DRUG INEFFECTIVE [None]
  - EXOSTOSIS [None]
  - DIABETES MELLITUS [None]
  - VOCAL CORD DISORDER [None]
  - NODULE [None]
  - SYNOVIAL CYST [None]
  - THYROID DISORDER [None]
